FAERS Safety Report 7421626-7 (Version None)
Quarter: 2011Q2

REPORT INFORMATION
  Report Type: 
  Country: None (occurrence: None)
  Receive Date: 20110418
  Receipt Date: 20110408
  Transmission Date: 20111010
  Serious: Yes (Other)
  Sender: FDA-Public Use
  Company Number: US-AMGEN-USASP2011015663

PATIENT
  Age: 38 Year
  Sex: Female

DRUGS (9)
  1. SENSIPAR [Suspect]
     Indication: HYPERPARATHYROIDISM SECONDARY
     Dosage: 30 MG, QD
  2. BUPROPION HYDROCHLORIDE [Concomitant]
  3. PREDNISONE [Concomitant]
  4. EFFEXOR [Concomitant]
  5. K-PHOS NEUTRAL [Concomitant]
  6. METOPROLOL [Concomitant]
  7. ASPIRIN [Concomitant]
  8. TACROLIMUS [Concomitant]
  9. MYCOPHENOLATE MOFETIL [Concomitant]

REACTIONS (2)
  - RENAL AND PANCREAS TRANSPLANT [None]
  - BLOOD PARATHYROID HORMONE INCREASED [None]
